FAERS Safety Report 8204030-3 (Version None)
Quarter: 2012Q1

REPORT INFORMATION
  Report Type: 
  Country: None (occurrence: None)
  Receive Date: 20120313
  Receipt Date: 20120308
  Transmission Date: 20120608
  Serious: No
  Sender: FDA-Public Use
  Company Number: US-PFIZER INC-2012062608

PATIENT
  Sex: Female
  Weight: 83.9 kg

DRUGS (7)
  1. TIKOSYN [Suspect]
     Dosage: 500 UG, 2X/DAY
     Route: 048
     Dates: start: 20110101
  2. ACETYLSALICYLIC ACID [Concomitant]
     Dosage: 81 MG, UNK
  3. TIKOSYN [Suspect]
     Indication: ATRIAL FIBRILLATION
     Dosage: 250 UG, 2X/DAY
     Route: 048
     Dates: start: 20100901, end: 20110101
  4. OMEPRAZOLE [Concomitant]
     Indication: GASTROOESOPHAGEAL REFLUX DISEASE
     Dosage: 20 MG, UNK
  5. CITALOPRAM [Concomitant]
     Indication: DEPRESSION
     Dosage: 20 MG, UNK
  6. AMLODIPINE/VALSARTAN [Concomitant]
     Indication: HYPERTENSION
     Dosage: 10 MG, UNK
  7. NADOLOL [Concomitant]
     Indication: HEART RATE INCREASED
     Dosage: 20 MG, UNK

REACTIONS (4)
  - DYSPNOEA [None]
  - FATIGUE [None]
  - DRUG INEFFECTIVE [None]
  - WHEEZING [None]
